FAERS Safety Report 15328635 (Version 4)
Quarter: 2018Q4

REPORT INFORMATION
  Report Type: Report from Study
  Country: US (occurrence: US)
  Receive Date: 20180829
  Receipt Date: 20181127
  Transmission Date: 20190204
  Serious: Yes (Other)
  Sender: FDA-Public Use
  Company Number: US-AMGEN-USASL2018110868

PATIENT
  Age: 69 Year
  Sex: Female
  Weight: 86.17 kg

DRUGS (8)
  1. OXICONAZOLE NITRATE. [Concomitant]
     Active Substance: OXICONAZOLE NITRATE
     Dosage: 1 %, AS NECESSARY
  2. HYDROCORTISONE VALERATE. [Concomitant]
     Active Substance: HYDROCORTISONE VALERATE
     Dosage: 0.2 %, QWK
  3. XULTOPHY 100/3.6 [Concomitant]
     Active Substance: INSULIN DEGLUDEC\LIRAGLUTIDE
     Dosage: 28 UNIT, QD
     Route: 058
  4. METFORMIN HCL [Concomitant]
     Active Substance: METFORMIN HYDROCHLORIDE
     Dosage: 500 MG, QD
     Route: 048
  5. REPATHA [Suspect]
     Active Substance: EVOLOCUMAB
     Indication: TYPE IIA HYPERLIPIDAEMIA
     Dosage: 140 MG, Q2WK
     Route: 058
     Dates: start: 20180322, end: 20180702
  6. REPATHA [Suspect]
     Active Substance: EVOLOCUMAB
     Indication: HYPERLIPIDAEMIA
  7. REPATHA [Suspect]
     Active Substance: EVOLOCUMAB
     Indication: HYPERCHOLESTEROLAEMIA
  8. LOSARTAN POTASSIUM. [Concomitant]
     Active Substance: LOSARTAN POTASSIUM
     Dosage: 50 MG, QD

REACTIONS (10)
  - Depression [Recovering/Resolving]
  - Spinal column stenosis [Unknown]
  - Musculoskeletal stiffness [Unknown]
  - Myalgia [Unknown]
  - Arthralgia [Recovering/Resolving]
  - Muscle spasms [Unknown]
  - Suicidal ideation [Recovering/Resolving]
  - Back pain [Not Recovered/Not Resolved]
  - Sluggishness [Recovering/Resolving]
  - Pain in extremity [Unknown]

NARRATIVE: CASE EVENT DATE: 2018
